FAERS Safety Report 8287531-1 (Version None)
Quarter: 2012Q2

REPORT INFORMATION
  Report Type: 
  Country: None (occurrence: None)
  Receive Date: 20120411
  Receipt Date: 20120411
  Transmission Date: 20120825
  Serious: Yes (Other)
  Sender: FDA-Public Use
  Company Number: None

PATIENT
  Sex: Female
  Weight: 82.5547 kg

DRUGS (1)
  1. NIFEDIPINE [Suspect]
     Indication: HYPERTENSION
     Dosage: 30 1X DAILY BY MOUTH
     Dates: start: 20090421

REACTIONS (5)
  - BLINDNESS [None]
  - BLOOD PRESSURE INCREASED [None]
  - EYE DISORDER [None]
  - MALAISE [None]
  - DIZZINESS [None]
